FAERS Safety Report 18924097 (Version 1)
Quarter: 2021Q1

REPORT INFORMATION
  Report Type: Spontaneous
  Country: DE (occurrence: DE)
  Receive Date: 20210222
  Receipt Date: 20210222
  Transmission Date: 20210420
  Serious: Yes (Congenital Anomaly)
  Sender: FDA-Public Use
  Company Number: DE-GLAXOSMITHKLINE-DE2021043042

PATIENT
  Age: 1 Day
  Sex: Female
  Weight: 4.11 kg

DRUGS (2)
  1. REVINTY ELLIPTA [Suspect]
     Active Substance: FLUTICASONE FUROATE\VILANTEROL TRIFENATATE
     Indication: ASTHMA
     Dosage: UNK
     Route: 064
     Dates: start: 20191127, end: 20200315
  2. BOOSTRIX POLIO [Concomitant]
     Active Substance: DIPHTHERIA AND TETANUS TOXOIDS AND ACELLULAR PERTUSSIS ADSORBED AND INACTIVATED POLIOVIRUS VACCINE
     Indication: IMMUNISATION
     Dosage: UNK
     Route: 064
     Dates: start: 20200225, end: 20200225

REACTIONS (2)
  - Foetal exposure during pregnancy [Unknown]
  - Bone neoplasm [Unknown]

NARRATIVE: CASE EVENT DATE: 20200914
